FAERS Safety Report 19742721 (Version 1)
Quarter: 2021Q3

REPORT INFORMATION
  Report Type: Report from Study
  Country: US (occurrence: US)
  Receive Date: 20210825
  Receipt Date: 20210825
  Transmission Date: 20211014
  Serious: Yes (Other)
  Sender: FDA-Public Use
  Company Number: US-SA-2021SA043024

PATIENT
  Age: 69 Year
  Sex: Male

DRUGS (7)
  1. ELIQUIS [Concomitant]
     Active Substance: APIXABAN
     Indication: ANTICOAGULANT THERAPY
  2. GABAPENTIN. [Concomitant]
     Active Substance: GABAPENTIN
  3. LEVOTHYROXINE. [Concomitant]
     Active Substance: LEVOTHYROXINE
     Indication: THYROID DISORDER
  4. TERIFLUNOMIDE. [Suspect]
     Active Substance: TERIFLUNOMIDE
     Indication: MULTIPLE SCLEROSIS
     Dosage: 14 MG, QD
     Route: 048
     Dates: start: 20130103, end: 20200801
  5. TERIFLUNOMIDE. [Suspect]
     Active Substance: TERIFLUNOMIDE
     Dosage: 14 MG, QD
     Route: 048
     Dates: start: 20210101
  6. DIGOXIN. [Concomitant]
     Active Substance: DIGOXIN
  7. BACLOFEN. [Concomitant]
     Active Substance: BACLOFEN

REACTIONS (4)
  - Product dose omission issue [Unknown]
  - Prostate cancer [Unknown]
  - Throat clearing [Unknown]
  - Bladder cancer [Unknown]

NARRATIVE: CASE EVENT DATE: 2020
